FAERS Safety Report 5443580-X (Version None)
Quarter: 2007Q3

REPORT INFORMATION
  Report Type: 
  Country: None (occurrence: None)
  Receive Date: 20070730
  Receipt Date: 20070125
  Transmission Date: 20080115
  Serious: No
  Sender: FDA-Public Use
  Company Number: 235580

PATIENT
  Age: 61 Year
  Sex: Female
  Weight: 92.1 kg

DRUGS (3)
  1. RITUXAN [Suspect]
     Indication: RHEUMATOID ARTHRITIS
     Dosage: 1000 MG, Q2W, INTRAVENOUS
     Route: 042
  2. PREDNISONE TAB [Concomitant]
  3. HUMIRA [Concomitant]

REACTIONS (1)
  - HERPES ZOSTER [None]
